FAERS Safety Report 24447924 (Version 2)
Quarter: 2024Q4

REPORT INFORMATION
  Report Type: Spontaneous
  Country: US (occurrence: US)
  Receive Date: 20241016
  Receipt Date: 20241110
  Transmission Date: 20250114
  Serious: Yes (Death, Hospitalization, Other)
  Sender: SANOFI AVENTIS
  Company Number: US-SA-2024SA295765

PATIENT
  Sex: Male
  Weight: 64 kg

DRUGS (19)
  1. PLAVIX [Suspect]
     Active Substance: CLOPIDOGREL BISULFATE
     Indication: Carotid artery stenosis
     Dosage: UNK
     Route: 048
     Dates: start: 20240820
  2. IBUPROFEN [Suspect]
     Active Substance: IBUPROFEN
     Indication: Back pain
     Dosage: 200 MG, TID
     Route: 065
  3. ZIMBERELIMAB [Suspect]
     Active Substance: ZIMBERELIMAB
     Indication: Non-small cell lung cancer
     Dosage: 360 MG
     Route: 042
     Dates: start: 20240627, end: 20240627
  4. ZIMBERELIMAB [Suspect]
     Active Substance: ZIMBERELIMAB
     Dosage: 360 MG
     Route: 042
     Dates: start: 20240719, end: 20240719
  5. ZIMBERELIMAB [Suspect]
     Active Substance: ZIMBERELIMAB
     Dosage: 360 MG
     Route: 042
     Dates: start: 20240809, end: 20240809
  6. ZIMBERELIMAB [Suspect]
     Active Substance: ZIMBERELIMAB
     Dosage: 360 MG
     Route: 042
     Dates: start: 20240830, end: 20240830
  7. ZIMBERELIMAB [Suspect]
     Active Substance: ZIMBERELIMAB
     Dosage: 360 MG
     Route: 042
     Dates: start: 20240920, end: 20240920
  8. DOMVANALIMAB [Suspect]
     Active Substance: DOMVANALIMAB
     Indication: Non-small cell lung cancer
     Dosage: UNK
     Route: 042
     Dates: start: 20240627, end: 20240627
  9. DOMVANALIMAB [Suspect]
     Active Substance: DOMVANALIMAB
     Dosage: UNK
     Route: 042
     Dates: start: 20240719, end: 20240719
  10. DOMVANALIMAB [Suspect]
     Active Substance: DOMVANALIMAB
     Dosage: UNK
     Route: 042
     Dates: start: 20240809, end: 20240809
  11. DOMVANALIMAB [Suspect]
     Active Substance: DOMVANALIMAB
     Dosage: UNK
     Route: 042
     Dates: start: 20240830, end: 20240830
  12. DOMVANALIMAB [Suspect]
     Active Substance: DOMVANALIMAB
     Dosage: UNK
     Route: 042
     Dates: start: 20240920, end: 20240920
  13. MAGNESIUM OXIDE [Concomitant]
     Active Substance: MAGNESIUM OXIDE
     Dosage: UNK
     Dates: start: 2022
  14. MIRALAX [Concomitant]
     Active Substance: POLYETHYLENE GLYCOL 3350
     Dosage: UNK
     Dates: start: 202405
  15. MIRTAZAPINE [Concomitant]
     Active Substance: MIRTAZAPINE
     Dosage: UNK
     Dates: start: 20240712
  16. ATORVASTATIN [Concomitant]
     Active Substance: ATORVASTATIN
     Dosage: UNK
     Dates: start: 20240821
  17. LOSARTAN [Concomitant]
     Active Substance: LOSARTAN
     Dosage: UNK
     Dates: start: 20240821
  18. OMEPRAZOLE [Concomitant]
     Active Substance: OMEPRAZOLE
     Dosage: UNK
     Dates: start: 20241001, end: 20241004
  19. DEXTROSE\SODIUM CHLORIDE [Concomitant]
     Active Substance: DEXTROSE\SODIUM CHLORIDE
     Dosage: UNK
     Dates: start: 20241001, end: 20241004

REACTIONS (1)
  - Lower gastrointestinal haemorrhage [Fatal]

NARRATIVE: CASE EVENT DATE: 20241001
